FAERS Safety Report 17714453 (Version 5)
Quarter: 2021Q3

REPORT INFORMATION
  Report Type: Spontaneous
  Country: US (occurrence: US)
  Receive Date: 20200427
  Receipt Date: 20210716
  Transmission Date: 20211014
  Serious: Yes (Hospitalization, Other)
  Sender: FDA-Public Use
  Company Number: US-GILEAD-2020-0460865

PATIENT
  Age: 33 Year
  Sex: Male
  Weight: 73.02 kg

DRUGS (90)
  1. ATRIPLA [Suspect]
     Active Substance: EFAVIRENZ\EMTRICITABINE\TENOFOVIR DISOPROXIL FUMARATE
     Indication: HEPATITIS B
     Dosage: UNK
     Route: 048
     Dates: start: 200805, end: 200805
  2. EPIVIR [Concomitant]
     Active Substance: LAMIVUDINE
  3. NORVIR [Concomitant]
     Active Substance: RITONAVIR
  4. PREZISTA [Concomitant]
     Active Substance: DARUNAVIR ETHANOLATE
  5. REYATAZ [Concomitant]
     Active Substance: ATAZANAVIR SULFATE
  6. TIVICAY [Concomitant]
     Active Substance: DOLUTEGRAVIR SODIUM
  7. AMOXICILLIN. [Concomitant]
     Active Substance: AMOXICILLIN
  8. HYDROCODONE;PARACETAMOL [Concomitant]
     Active Substance: ACETAMINOPHEN\HYDROCODONE
  9. LABETALOL [Concomitant]
     Active Substance: LABETALOL\LABETALOL HYDROCHLORIDE
  10. PREDNISONE. [Concomitant]
     Active Substance: PREDNISONE
  11. THORAZINE [Concomitant]
     Active Substance: CHLORPROMAZINE
  12. GENTAMICIN. [Concomitant]
     Active Substance: GENTAMICIN
  13. IMIQUIMOD. [Concomitant]
     Active Substance: IMIQUIMOD
  14. Q?TUSSIN DM [Concomitant]
  15. CALCITRIOL. [Concomitant]
     Active Substance: CALCITRIOL
  16. CEPHALEXIN [CEFALEXIN] [Concomitant]
     Active Substance: CEPHALEXIN
  17. CALCIUM CARBONATE. [Concomitant]
     Active Substance: CALCIUM CARBONATE
  18. PODOFILOX. [Concomitant]
     Active Substance: PODOFILOX
  19. LORATADINE. [Concomitant]
     Active Substance: LORATADINE
  20. BENADRYL [Concomitant]
     Active Substance: DIPHENHYDRAMINE HYDROCHLORIDE
  21. KYTRIL [Concomitant]
     Active Substance: GRANISETRON HYDROCHLORIDE
  22. VERSED [Concomitant]
     Active Substance: MIDAZOLAM HYDROCHLORIDE
  23. TRUVADA [Suspect]
     Active Substance: EMTRICITABINE\TENOFOVIR DISOPROXIL FUMARATE
     Dosage: UNK
     Route: 048
     Dates: end: 201710
  24. SUSTIVA [Concomitant]
     Active Substance: EFAVIRENZ
  25. BACTRIM [Concomitant]
     Active Substance: SULFAMETHOXAZOLE\TRIMETHOPRIM
  26. HYDROCHLOROTHIAZIDE. [Concomitant]
     Active Substance: HYDROCHLOROTHIAZIDE
  27. TRAMADOL. [Concomitant]
     Active Substance: TRAMADOL
  28. NYSTATIN. [Concomitant]
     Active Substance: NYSTATIN
  29. POTASSIUM CHLORIDE. [Concomitant]
     Active Substance: POTASSIUM CHLORIDE
  30. DOCQLACE [Concomitant]
     Active Substance: DOCUSATE SODIUM
  31. CETIRIZINE [Concomitant]
     Active Substance: CETIRIZINE HYDROCHLORIDE
  32. ROBITUSSIN (GUAIFENESIN) [Concomitant]
     Active Substance: GUAIFENESIN
  33. ODEFSEY [Concomitant]
     Active Substance: EMTRICITABINE\RILPIVIRINE HYDROCHLORIDE\TENOFOVIR ALAFENAMIDE FUMARATE
     Indication: HIV INFECTION
     Route: 048
  34. COMBIVIR [Concomitant]
     Active Substance: LAMIVUDINE\ZIDOVUDINE
  35. VANCOMYCIN [Concomitant]
     Active Substance: VANCOMYCIN
  36. NIFEDIPINE. [Concomitant]
     Active Substance: NIFEDIPINE
  37. METRONIDAZOLE. [Concomitant]
     Active Substance: METRONIDAZOLE
  38. MIDODRINE [Concomitant]
     Active Substance: MIDODRINE
  39. OFLOXACIN. [Concomitant]
     Active Substance: OFLOXACIN
  40. FLUCONAZOLE. [Concomitant]
     Active Substance: FLUCONAZOLE
  41. ONDANSETRON [Concomitant]
     Active Substance: ONDANSETRON
  42. TRUVADA [Suspect]
     Active Substance: EMTRICITABINE\TENOFOVIR DISOPROXIL FUMARATE
     Indication: HIV INFECTION
     Dosage: UNK
     Route: 048
     Dates: start: 20050228, end: 20050228
  43. INVIRASE [Concomitant]
     Active Substance: SAQUINAVIR MESYLATE
  44. VIRACEPT [Concomitant]
     Active Substance: NELFINAVIR MESYLATE
  45. LIDOCAINE. [Concomitant]
     Active Substance: LIDOCAINE
  46. DICYCLOMINE HCL [Concomitant]
     Active Substance: DICYCLOMINE HYDROCHLORIDE
  47. XIFAXAN [Concomitant]
     Active Substance: RIFAXIMIN
  48. CLINDAMYCIN. [Concomitant]
     Active Substance: CLINDAMYCIN
  49. AZITHROMYCIN ANHYDROUS. [Concomitant]
     Active Substance: AZITHROMYCIN ANHYDROUS
  50. PHENERGAN [Concomitant]
     Active Substance: PROMETHAZINE HYDROCHLORIDE
  51. VIREAD [Suspect]
     Active Substance: TENOFOVIR DISOPROXIL FUMARATE
     Indication: HEPATITIS B
     Dosage: UNK
     Route: 048
     Dates: start: 20091223, end: 201109
  52. KALETRA [Concomitant]
     Active Substance: LOPINAVIR\RITONAVIR
  53. ACYCLOVIR [ACICLOVIR] [Concomitant]
     Active Substance: ACYCLOVIR
  54. ALEVE [Concomitant]
     Active Substance: NAPROXEN SODIUM
  55. LEVOFLOXACIN. [Concomitant]
     Active Substance: LEVOFLOXACIN
  56. FEXOFENADINE;PSEUDOEPHEDRINE [Concomitant]
  57. ANCEF [Concomitant]
     Active Substance: CEFAZOLIN SODIUM
  58. TRUVADA [Suspect]
     Active Substance: EMTRICITABINE\TENOFOVIR DISOPROXIL FUMARATE
     Dosage: UNK
     Route: 048
     Dates: start: 20050228, end: 20050528
  59. ISENTRESS [Concomitant]
     Active Substance: RALTEGRAVIR POTASSIUM
  60. FLEET LAXATIVE [Concomitant]
  61. PANTOPRAZOLE [Concomitant]
     Active Substance: PANTOPRAZOLE
  62. TYLENOL [Concomitant]
     Active Substance: ACETAMINOPHEN
  63. MAALOX PLUS [ALUMINIUM HYDROXIDE;MAGNESIUM HYDROXIDE;SIMETICONE] [Concomitant]
  64. DICLOFENAC [Concomitant]
     Active Substance: DICLOFENAC
  65. AMIODARONE [Concomitant]
     Active Substance: AMIODARONE
  66. GAVILYTE G [Concomitant]
     Active Substance: POLYETHYLENE GLYCOL 3350\POTASSIUM CHLORIDE\SODIUM BICARBONATE\SODIUM CHLORIDE\SODIUM SULFATE
  67. SEVELAMER [Concomitant]
     Active Substance: SEVELAMER
  68. MEGESTROL [Concomitant]
     Active Substance: MEGESTROL
  69. CINACALCET. [Concomitant]
     Active Substance: CINACALCET
  70. DOCUSATE SODIUM. [Concomitant]
     Active Substance: DOCUSATE SODIUM
  71. VIBRAMYCIN [DOXYCYCLINE HYCLATE] [Concomitant]
  72. SUBLIMAZE [Concomitant]
     Active Substance: FENTANYL CITRATE
  73. RETROVIR [Concomitant]
     Active Substance: ZIDOVUDINE
  74. VIDEX [Concomitant]
     Active Substance: DIDANOSINE
  75. HEPARIN [Concomitant]
     Active Substance: HEPARIN SODIUM
  76. ASPIRIN (E.C.) [Concomitant]
     Active Substance: ASPIRIN
  77. ZITHROMAX [Concomitant]
     Active Substance: AZITHROMYCIN DIHYDRATE
  78. DIFLUCAN [Concomitant]
     Active Substance: FLUCONAZOLE
  79. DIBUCAINE HCL [Concomitant]
  80. VIREAD [Suspect]
     Active Substance: TENOFOVIR DISOPROXIL FUMARATE
     Indication: HIV INFECTION
     Dosage: UNK
     Route: 048
     Dates: start: 20040112, end: 20171023
  81. TRUVADA [Suspect]
     Active Substance: EMTRICITABINE\TENOFOVIR DISOPROXIL FUMARATE
     Indication: HEPATITIS B
     Dosage: UNK
     Route: 048
     Dates: start: 20070627, end: 20080529
  82. ATRIPLA [Suspect]
     Active Substance: EFAVIRENZ\EMTRICITABINE\TENOFOVIR DISOPROXIL FUMARATE
     Indication: HIV INFECTION
     Dosage: UNK
     Route: 048
     Dates: start: 20050526, end: 20050805
  83. ZERIT [Concomitant]
     Active Substance: STAVUDINE
  84. ACETAMINOPHEN. [Concomitant]
     Active Substance: ACETAMINOPHEN
  85. OXYCODONE AND ACETAMINOPHEN [Concomitant]
     Active Substance: ACETAMINOPHEN\OXYCODONE HYDROCHLORIDE
  86. PENICILLIN B [Concomitant]
     Active Substance: PHENETICILLIN
  87. CIPROFLOXACIN. [Concomitant]
     Active Substance: CIPROFLOXACIN
  88. CYANOCOBALAMIN. [Concomitant]
     Active Substance: CYANOCOBALAMIN
  89. ROCEPHIN [Concomitant]
     Active Substance: CEFTRIAXONE SODIUM
  90. MILK OF MAGNESIA [Concomitant]
     Active Substance: MAGNESIUM HYDROXIDE

REACTIONS (11)
  - End stage renal disease [Not Recovered/Not Resolved]
  - Chronic kidney disease [Not Recovered/Not Resolved]
  - Hyperparathyroidism secondary [Not Recovered/Not Resolved]
  - Renal cyst [Unknown]
  - Emotional distress [Not Recovered/Not Resolved]
  - Anxiety [Not Recovered/Not Resolved]
  - Renal tubular necrosis [Not Recovered/Not Resolved]
  - Mobility decreased [Unknown]
  - Acute kidney injury [Not Recovered/Not Resolved]
  - Pain [Not Recovered/Not Resolved]
  - Renal failure [Not Recovered/Not Resolved]

NARRATIVE: CASE EVENT DATE: 20040617
